FAERS Safety Report 5709609-6 (Version None)
Quarter: 2008Q2

REPORT INFORMATION
  Report Type: 
  Country: None (occurrence: None)
  Receive Date: 20080418
  Receipt Date: 20080411
  Transmission Date: 20081010
  Serious: Yes (Other)
  Sender: FDA-Public Use
  Company Number: A0723501A

PATIENT

DRUGS (2)
  1. ZIAGENAVIR [Suspect]
     Indication: DRUG USE FOR UNKNOWN INDICATION
     Dosage: 300MG UNKNOWN
     Route: 048
  2. LAMIVUDINE [Concomitant]

REACTIONS (1)
  - THROMBOCYTOPENIA [None]
